FAERS Safety Report 7097791-0 (Version None)
Quarter: 2010Q4

REPORT INFORMATION
  Report Type: 
  Country: None (occurrence: None)
  Receive Date: 20101112
  Receipt Date: 20101029
  Transmission Date: 20110411
  Serious: Yes (Disabling)
  Sender: FDA-Public Use
  Company Number: GB-RANBAXY-2010R1-39263

PATIENT

DRUGS (8)
  1. GABAPENTIN [Suspect]
     Indication: PRODUCT USED FOR UNKNOWN INDICATION
     Dosage: UNK
     Route: 048
  2. NEURONTIN [Suspect]
     Indication: INTERVERTEBRAL DISC DISORDER
     Dosage: 300 MG, QID
     Route: 048
     Dates: start: 20090224
  3. AMIAS [Concomitant]
     Indication: MYOCARDIAL ISCHAEMIA
     Dosage: 8 MG, QD
     Route: 065
     Dates: start: 20080101
  4. LANSOPRAZOLE [Concomitant]
     Indication: MYOCARDIAL ISCHAEMIA
     Dosage: 15 MG, QD
     Route: 048
     Dates: start: 20060101
  5. LIPITOR [Concomitant]
     Indication: MYOCARDIAL ISCHAEMIA
     Dosage: 20 MG, QD
     Route: 048
     Dates: start: 20010101
  6. NU-SEALS ASPIRIN [Concomitant]
     Indication: MYOCARDIAL ISCHAEMIA
     Dosage: 150 MG, QD
     Route: 048
     Dates: start: 20010101
  7. PLAVIX [Concomitant]
     Indication: MYOCARDIAL ISCHAEMIA
     Dosage: 75 MG, QD
     Route: 048
     Dates: start: 20040101
  8. TAMBOCOR [Concomitant]
     Indication: MYOCARDIAL ISCHAEMIA
     Dosage: 50 MG, UNK
     Route: 048
     Dates: start: 20090108

REACTIONS (3)
  - ASTHENIA [None]
  - DRUG INTOLERANCE [None]
  - HYPERHIDROSIS [None]
